FAERS Safety Report 24240068 (Version 2)
Quarter: 2024Q3

REPORT INFORMATION
  Report Type: Spontaneous
  Country: NO (occurrence: NO)
  Receive Date: 20240822
  Receipt Date: 20240919
  Transmission Date: 20241017
  Serious: Yes (Other)
  Sender: MERCK
  Company Number: NO-009507513-2408NOR006157

PATIENT
  Age: 58 Year
  Sex: Female
  Weight: 48 kg

DRUGS (2)
  1. KEYTRUDA [Suspect]
     Active Substance: PEMBROLIZUMAB
     Indication: Triple negative breast cancer
     Dosage: EVERY 3 WEEKS
     Dates: start: 202311, end: 20240311
  2. KEYTRUDA [Suspect]
     Active Substance: PEMBROLIZUMAB
     Dosage: 200 MILLIGRAM, EVERY 3 WEEKS
     Dates: start: 20240620

REACTIONS (22)
  - Radiotherapy [Unknown]
  - Neuropathy peripheral [Unknown]
  - Hypophagia [Unknown]
  - Heart rate increased [Unknown]
  - Restlessness [Unknown]
  - Anxiety [Unknown]
  - Tinnitus [Unknown]
  - Muscular weakness [Unknown]
  - Underweight [Unknown]
  - Erythema [Unknown]
  - Rash [Unknown]
  - Burning sensation [Unknown]
  - Vision blurred [Unknown]
  - Mucosal inflammation [Unknown]
  - Oral fungal infection [Unknown]
  - Dizziness [Unknown]
  - Dry mouth [Unknown]
  - Diarrhoea [Unknown]
  - Nausea [Unknown]
  - Weight decreased [Unknown]
  - Fatigue [Unknown]
  - Malnutrition [Unknown]

NARRATIVE: CASE EVENT DATE: 20240404
